FAERS Safety Report 12124715 (Version 1)
Quarter: 2016Q1

REPORT INFORMATION
  Report Type: Spontaneous
  Country: IT (occurrence: IT)
  Receive Date: 20160229
  Receipt Date: 20160229
  Transmission Date: 20160526
  Serious: Yes (Death, Other)
  Sender: FDA-Public Use
  Company Number: IT-ROXANE LABORATORIES, INC.-2016-RO-00395RO

PATIENT
  Age: 78 Year
  Sex: Male

DRUGS (4)
  1. CYCLOPHOSPHAMIDE. [Suspect]
     Active Substance: CYCLOPHOSPHAMIDE
     Indication: LYMPHOPROLIFERATIVE DISORDER
     Route: 065
  2. VINCRISTINE [Suspect]
     Active Substance: VINCRISTINE
     Indication: LYMPHOPROLIFERATIVE DISORDER
     Route: 065
  3. RITUXIMAB [Suspect]
     Active Substance: RITUXIMAB
     Indication: LYMPHOPROLIFERATIVE DISORDER
     Route: 065
  4. PREDNISOLONE. [Suspect]
     Active Substance: PREDNISOLONE
     Indication: LYMPHOPROLIFERATIVE DISORDER
     Route: 065

REACTIONS (2)
  - Ischaemic cardiomyopathy [Unknown]
  - Death [Fatal]
